FAERS Safety Report 8322242 (Version 2)
Quarter: 2014Q1

REPORT INFORMATION
  Report Type: Spontaneous
  Country: US (occurrence: US)
  Receive Date: 20120105
  Receipt Date: 20140121
  Transmission Date: 20141002
  Serious: Yes (Other)
  Sender: FDA-Public Use
  Company Number: US-BAYER-2012-000043

PATIENT
  Age: 29 Year
  Sex: Female
  Weight: 59.86 kg

DRUGS (4)
  1. YASMIN [Suspect]
     Dosage: UNK
     Dates: start: 200610
  2. OCELLA [Suspect]
     Dosage: UNK
     Dates: start: 200610
  3. IBUPROFEN [Concomitant]
  4. PERCOCET [Concomitant]

REACTIONS (4)
  - Gallbladder disorder [None]
  - Cholecystitis chronic [None]
  - Injury [None]
  - Pain [None]
